FAERS Safety Report 17444911 (Version 1)
Quarter: 2020Q1

REPORT INFORMATION
  Report Type: Spontaneous
  Country: IT (occurrence: IT)
  Receive Date: 20200221
  Receipt Date: 20200221
  Transmission Date: 20200409
  Serious: Yes (Other)
  Sender: FDA-Public Use
  Company Number: IT-009507513-2002ITA006693

PATIENT
  Age: 49 Year
  Sex: Female

DRUGS (5)
  1. PLASIL [Concomitant]
     Active Substance: METOCLOPRAMIDE HYDROCHLORIDE
     Dosage: UNK
  2. CLONIDINE. [Concomitant]
     Active Substance: CLONIDINE
     Dosage: UNK
  3. CUBICIN [Suspect]
     Active Substance: DAPTOMYCIN
     Indication: SKIN BACTERIAL INFECTION
     Dosage: POWDER FOR SOLUTION FOR INJECTION OR INFUSION, 1 DOSAGE FORM, 1 DAY (QD)
     Route: 042
     Dates: start: 20200128
  4. DELORAZEPAM [Concomitant]
     Active Substance: DELORAZEPAM
     Dosage: UNK
  5. DEPALGOS [Concomitant]
     Active Substance: ACETAMINOPHEN\OXYCODONE HYDROCHLORIDE
     Dosage: UNK

REACTIONS (1)
  - Platelet count increased [Recovering/Resolving]

NARRATIVE: CASE EVENT DATE: 20200203
